FAERS Safety Report 19056406 (Version 1)
Quarter: 2021Q1

REPORT INFORMATION
  Report Type: Report from Study
  Country: CA (occurrence: CA)
  Receive Date: 20210325
  Receipt Date: 20210325
  Transmission Date: 20210420
  Serious: Yes (Other)
  Sender: FDA-Public Use
  Company Number: CA-HLS-202002401

PATIENT
  Age: 26 Year
  Sex: Female
  Weight: 105 kg

DRUGS (1)
  1. CLOZARIL [Suspect]
     Active Substance: CLOZAPINE
     Indication: PRODUCT USED FOR UNKNOWN INDICATION
     Dosage: 75 MG QHS
     Route: 048
     Dates: start: 20190916

REACTIONS (11)
  - Asthenia [Unknown]
  - Rhinorrhoea [Unknown]
  - Eosinophil count increased [Unknown]
  - Neutrophil count increased [Unknown]
  - Sinus tachycardia [Unknown]
  - C-reactive protein increased [Unknown]
  - Oropharyngeal pain [Unknown]
  - Pulmonary embolism [Unknown]
  - Cough [Unknown]
  - Pain [Unknown]
  - White blood cell count increased [Unknown]

NARRATIVE: CASE EVENT DATE: 20191007
